FAERS Safety Report 15794255 (Version 1)
Quarter: 2019Q1

REPORT INFORMATION
  Report Type: Spontaneous
  Country: CN (occurrence: CN)
  Receive Date: 20190107
  Receipt Date: 20190107
  Transmission Date: 20190417
  Serious: Yes (Hospitalization)
  Sender: FDA-Public Use
  Company Number: CN-GLAXOSMITHKLINE-CN2019GSK000045

PATIENT
  Age: 59 Year
  Sex: Female
  Weight: 55 kg

DRUGS (2)
  1. SERETIDE [Suspect]
     Active Substance: FLUTICASONE PROPIONATE\SALMETEROL XINAFOATE
     Indication: ASTHMA
     Dosage: 3 PUFF(S), QD
     Route: 055
  2. SERETIDE [Suspect]
     Active Substance: FLUTICASONE PROPIONATE\SALMETEROL XINAFOATE
     Indication: TRACHEITIS

REACTIONS (6)
  - Asthma [Recovered/Resolved]
  - Overdose [Unknown]
  - Disease recurrence [Recovered/Resolved]
  - Nasopharyngitis [Not Recovered/Not Resolved]
  - Dysphonia [Not Recovered/Not Resolved]
  - Tracheitis [Recovered/Resolved]

NARRATIVE: CASE EVENT DATE: 20181231
